FAERS Safety Report 7818026-4 (Version None)
Quarter: 2011Q4

REPORT INFORMATION
  Report Type: 
  Country: None (occurrence: None)
  Receive Date: 20111017
  Receipt Date: 20111004
  Transmission Date: 20120403
  Serious: Yes (Life-Threatening, Hospitalization)
  Sender: FDA-Public Use
  Company Number: US-BAYER-2010-003634

PATIENT
  Age: 27 Year
  Sex: Female
  Weight: 89.796 kg

DRUGS (5)
  1. YASMIN [Suspect]
     Indication: CONTRACEPTION
     Dosage: UNK
     Dates: start: 20070312, end: 20070526
  2. MOTRIN [Concomitant]
     Dosage: 800 MG, UNK
  3. YASMIN [Suspect]
     Indication: ACNE
  4. LEXAPRO [Concomitant]
     Indication: DEPRESSION
     Dosage: UNK
     Dates: start: 20070528
  5. ZOLOFT [Concomitant]

REACTIONS (7)
  - GASTROINTESTINAL HAEMORRHAGE [None]
  - ANAEMIA [None]
  - PAIN [None]
  - PORTAL VEIN THROMBOSIS [None]
  - HYPERTENSION [None]
  - VARICES OESOPHAGEAL [None]
  - PANCREATITIS [None]
